FAERS Safety Report 21805260 (Version 1)
Quarter: 2023Q1

REPORT INFORMATION
  Report Type: Spontaneous
  Country: FR (occurrence: FR)
  Receive Date: 20230102
  Receipt Date: 20230102
  Transmission Date: 20230418
  Serious: Yes (Hospitalization, Other)
  Sender: FDA-Public Use
  Company Number: FR-AFSSAPS-GR20222633

PATIENT
  Age: 74 Year
  Sex: Female
  Weight: 67 kg

DRUGS (2)
  1. CIPROFLOXACIN [Suspect]
     Active Substance: CIPROFLOXACIN
     Indication: Osteitis
     Dosage: 750 MILLIGRAM, TWO TIMES A DAY
     Route: 048
     Dates: start: 20221115, end: 20221121
  2. SIVEXTRO [Suspect]
     Active Substance: TEDIZOLID PHOSPHATE
     Indication: Osteitis
     Dosage: 200 MILLIGRAM
     Route: 048
     Dates: start: 20221115, end: 20221121

REACTIONS (2)
  - Acute kidney injury [Recovered/Resolved]
  - Nephritis [Recovered/Resolved]

NARRATIVE: CASE EVENT DATE: 20221118
